FAERS Safety Report 7309032 (Version 4)
Quarter: 2012Q4

REPORT INFORMATION
  Report Type: 
  Country: US (occurrence: US)
  Receive Date: 20100309
  Receipt Date: 20120903
  Transmission Date: 20130627
  Serious: Yes (Hospitalization)
  Sender: FDA-Public Use
  Company Number: US-BAYER-201015514NA

PATIENT
  Age: 18 Year
  Sex: Female
  Weight: 100 kg

DRUGS (2)
  1. YAZ [Suspect]
     Indication: ORAL CONTRACEPTION
     Dosage: UNK UNK, UNK
     Route: 048
     Dates: start: 200703, end: 201003
  2. ALEVE [Concomitant]
     Indication: MENSTRUAL CYCLE MANAGEMENT
     Dosage: 2 per month

REACTIONS (12)
  - Cholecystitis [Unknown]
  - Cholelithiasis [None]
  - Bile duct stone [None]
  - Nausea [None]
  - Diarrhoea [None]
  - Scar [None]
  - Vomiting [None]
  - Abdominal pain upper [None]
  - Back pain [None]
  - Chest pain [None]
  - Abdominal discomfort [None]
  - Dyspnoea [None]
